FAERS Safety Report 6279207-7 (Version None)
Quarter: 2009Q3

REPORT INFORMATION
  Report Type: 
  Country: None (occurrence: None)
  Receive Date: 20090723
  Receipt Date: 20080722
  Transmission Date: 20100115
  Serious: No
  Sender: FDA-Public Use
  Company Number: US-AMGEN-KDL296623

PATIENT
  Age: 30 Year
  Sex: Male

DRUGS (3)
  1. EPOGEN [Suspect]
     Indication: HIV INFECTION
     Dates: start: 20080501, end: 20080605
  2. ZIDOVUDINE [Concomitant]
     Dates: end: 20080501
  3. BLOOD CELLS, PACKED HUMAN [Concomitant]
     Dates: start: 20080501

REACTIONS (1)
  - HAEMOGLOBIN INCREASED [None]
